FAERS Safety Report 5805865-4 (Version None)
Quarter: 2008Q3

REPORT INFORMATION
  Report Type: 
  Country: None (occurrence: None)
  Receive Date: 20080710
  Receipt Date: 20080702
  Transmission Date: 20090109
  Serious: Yes (Death)
  Sender: FDA-Public Use
  Company Number: IN-BRISTOL-MYERS SQUIBB COMPANY-14248413

PATIENT

DRUGS (2)
  1. TAXOL [Suspect]
  2. CISPLATIN [Suspect]

REACTIONS (2)
  - FEBRILE NEUTROPENIA [None]
  - RENAL FAILURE ACUTE [None]
